FAERS Safety Report 5674045-8 (Version None)
Quarter: 2008Q1

REPORT INFORMATION
  Report Type: 
  Country: None (occurrence: None)
  Receive Date: 20080319
  Receipt Date: 20080319
  Transmission Date: 20080703
  Serious: Yes (Other)
  Sender: FDA-Public Use
  Company Number: None

PATIENT
  Age: 60 Year
  Sex: Female
  Weight: 54.4316 kg

DRUGS (2)
  1. SERTRALINE [Suspect]
     Dosage: 3 PO QAM
     Route: 048
     Dates: start: 20061020
  2. LORAZEPAM [Concomitant]

REACTIONS (3)
  - DISORIENTATION [None]
  - PANIC ATTACK [None]
  - PHARMACEUTICAL PRODUCT COMPLAINT [None]
